FAERS Safety Report 12313471 (Version 1)
Quarter: 2016Q2

REPORT INFORMATION
  Report Type: Report from Study
  Country: US (occurrence: US)
  Receive Date: 20160428
  Receipt Date: 20160428
  Transmission Date: 20160815
  Serious: Yes (Other)
  Sender: FDA-Public Use
  Company Number: US-PURDUE-USA-2016-0130478

PATIENT
  Sex: Male

DRUGS (2)
  1. OXYCONTIN [Suspect]
     Active Substance: OXYCODONE HYDROCHLORIDE
     Indication: SCIATICA
     Dosage: 60 MG, BID
     Route: 048
     Dates: start: 201604
  2. OXYCONTIN [Suspect]
     Active Substance: OXYCODONE HYDROCHLORIDE
     Dosage: UNK
     Route: 048
     Dates: start: 2005

REACTIONS (10)
  - Arthralgia [Unknown]
  - Extra dose administered [Recovered/Resolved]
  - Neck pain [Unknown]
  - Chest pain [Recovered/Resolved]
  - Adjustment disorder with depressed mood [Not Recovered/Not Resolved]
  - Pneumonia [Recovered/Resolved]
  - Nausea [Unknown]
  - Arthropod bite [Recovered/Resolved]
  - Headache [Unknown]
  - Fall [Recovered/Resolved]
